FAERS Safety Report 16518955 (Version 1)
Quarter: 2019Q3

REPORT INFORMATION
  Report Type: Spontaneous
  Country: US (occurrence: US)
  Receive Date: 20190522
  Receipt Date: 20190522
  Transmission Date: 20191004
  Serious: Yes (Other)
  Sender: FDA-Public Use
  Company Number: None

PATIENT

DRUGS (1)
  1. DOXYCYCLINE HYCLATE 100MG [Suspect]
     Active Substance: DOXYCYCLINE HYCLATE
     Indication: INFECTION
     Dosage: ?          QUANTITY:100 MG MILLIGRAM(S);?
     Route: 048
     Dates: start: 20190426, end: 20190427

REACTIONS (3)
  - Screaming [None]
  - Feeling abnormal [None]
  - Speech disorder [None]

NARRATIVE: CASE EVENT DATE: 20190404
